FAERS Safety Report 7326710-4 (Version None)
Quarter: 2011Q1

REPORT INFORMATION
  Report Type: 
  Country: None (occurrence: None)
  Receive Date: 20110302
  Receipt Date: 20100112
  Transmission Date: 20110831
  Serious: No
  Sender: FDA-Public Use
  Company Number: US-PFIZER INC-2010005167

PATIENT
  Sex: Female

DRUGS (1)
  1. VFEND [Suspect]

REACTIONS (4)
  - DIZZINESS [None]
  - VISUAL IMPAIRMENT [None]
  - DISORIENTATION [None]
  - VISION BLURRED [None]
